FAERS Safety Report 4460163-9 (Version None)
Quarter: 2004Q3

REPORT INFORMATION
  Report Type: 
  Country: None (occurrence: None)
  Receive Date: 20040928
  Receipt Date: 20040109
  Transmission Date: 20050211
  Serious: No
  Sender: FDA-Public Use
  Company Number: US-GLAXOSMITHKLINE-A0492271A

PATIENT
  Age: 20 Year
  Sex: Female

DRUGS (3)
  1. SEREVENT [Suspect]
     Indication: ASTHMA
     Dosage: 1PUFF TWICE PER DAY
     Route: 055
     Dates: start: 20040102, end: 20040107
  2. PROVENTIL [Concomitant]
  3. BIRTH CONTROL [Concomitant]

REACTIONS (6)
  - CHEST DISCOMFORT [None]
  - DIFFICULTY IN WALKING [None]
  - DYSPNOEA [None]
  - HEADACHE [None]
  - MUSCLE TIGHTNESS [None]
  - PHOTOSENSITIVITY REACTION [None]
